FAERS Safety Report 20904893 (Version 2)
Quarter: 2022Q2

REPORT INFORMATION
  Report Type: Spontaneous
  Country: AR (occurrence: AR)
  Receive Date: 20220602
  Receipt Date: 20220619
  Transmission Date: 20220720
  Serious: Yes (Other)
  Sender: FDA-Public Use
  Company Number: AR-PFIZER INC-202200771683

PATIENT
  Age: 81 Year
  Sex: Female

DRUGS (1)
  1. ENBREL [Suspect]
     Active Substance: ETANERCEPT
     Indication: Rheumatoid arthritis
     Dosage: 50 MILLIGRAM, QWK
     Route: 065
     Dates: start: 20110809

REACTIONS (8)
  - Bronchial disorder [Recovered/Resolved]
  - Post-acute COVID-19 syndrome [Recovered/Resolved]
  - COVID-19 [Recovered/Resolved]
  - Intentional product misuse [Unknown]
  - Illness [Not Recovered/Not Resolved]
  - Catarrh [Recovered/Resolved]
  - Aphonia [Recovered/Resolved]
  - Pain [Unknown]

NARRATIVE: CASE EVENT DATE: 20220101
